FAERS Safety Report 4339807-8 (Version None)
Quarter: 2004Q2

REPORT INFORMATION
  Report Type: 
  Country: None (occurrence: None)
  Receive Date: 20040416
  Receipt Date: 20040322
  Transmission Date: 20050107
  Serious: No
  Sender: FDA-Public Use
  Company Number: US-BRISTOL-MYERS SQUIBB COMPANY-12539391

PATIENT
  Age: 76 Year
  Sex: Female
  Weight: 63 kg

DRUGS (10)
  1. CAPTOPRIL [Suspect]
     Indication: LIVER DISORDER
     Dosage: START 50MG QD 5-6YRS AGO; DOSE INCREASED 50MG BID ^SOMETIME AGO^;STOPPED 2 MONTHS + RESTARTED.
     Route: 048
  2. CAPTOPRIL [Suspect]
     Indication: RENAL DISORDER
     Dosage: START 50MG QD 5-6YRS AGO; DOSE INCREASED 50MG BID ^SOMETIME AGO^;STOPPED 2 MONTHS + RESTARTED.
     Route: 048
  3. ATACAND [Concomitant]
  4. PROCARDIA [Concomitant]
  5. LIPITOR [Concomitant]
  6. FOSAMAX [Concomitant]
  7. L-THYROXINE [Concomitant]
  8. GLUCOTROL [Concomitant]
  9. METFORMIN HYDROCHLORIDE [Concomitant]
  10. ASPIRIN [Concomitant]

REACTIONS (1)
  - FLATULENCE [None]
